FAERS Safety Report 4918299-1 (Version None)
Quarter: 2006Q1

REPORT INFORMATION
  Report Type: 
  Country: None (occurrence: None)
  Receive Date: 20060215
  Receipt Date: 20060131
  Transmission Date: 20060701
  Serious: No
  Sender: FDA-Public Use
  Company Number: 2005S1004354

PATIENT
  Age: 43 Year
  Sex: Male
  Weight: 104.3273 kg

DRUGS (4)
  1. FENTANYL [Suspect]
     Indication: BACK PAIN
     Dosage: 25 MCG/HR;QOD;TDER
     Route: 062
     Dates: start: 20050301
  2. FENTANYL [Suspect]
     Indication: PROCEDURAL PAIN
     Dosage: 25 MCG/HR;QOD;TDER
     Route: 062
     Dates: start: 20050301
  3. HYDROCODONE BITARTRATE + IBUPROFEN [Concomitant]
  4. TIAGABINE HYDROCHLORIDE [Concomitant]

REACTIONS (4)
  - DIZZINESS [None]
  - HEADACHE [None]
  - PHARMACEUTICAL PRODUCT COMPLAINT [None]
  - THERAPEUTIC RESPONSE UNEXPECTED WITH DRUG SUBSTITUTION [None]
